FAERS Safety Report 5745850-4 (Version None)
Quarter: 2008Q2

REPORT INFORMATION
  Report Type: 
  Country: None (occurrence: None)
  Receive Date: 20080520
  Receipt Date: 20080428
  Transmission Date: 20081010
  Serious: Yes (Hospitalization)
  Sender: FDA-Public Use
  Company Number: E2090-00433-SPO-DE

PATIENT
  Age: 32 Year
  Sex: Male
  Weight: 68 kg

DRUGS (3)
  1. ZONEGRAN [Suspect]
     Dosage: 350 MG, 200 MG, IN AM AND 150 MG IN PM, ORAL
     Route: 048
     Dates: start: 20071001, end: 20080401
  2. LAMOTRIGINE [Concomitant]
  3. VALPROIC ACID [Concomitant]

REACTIONS (1)
  - AGGRESSION [None]
